FAERS Safety Report 10242679 (Version 1)
Quarter: 2014Q2

REPORT INFORMATION
  Report Type: Spontaneous
  Country: FR (occurrence: FR)
  Receive Date: 20140617
  Receipt Date: 20140617
  Transmission Date: 20141212
  Serious: Yes (Other)
  Sender: FDA-Public Use
  Company Number: FR-ABBVIE-14P-056-1247825-00

PATIENT
  Age: 54 Year
  Sex: Female

DRUGS (1)
  1. ADALIMUMAB [Suspect]
     Indication: RHEUMATOID ARTHRITIS

REACTIONS (1)
  - Subacute cutaneous lupus erythematosus [Unknown]
